FAERS Safety Report 7444815-4 (Version None)
Quarter: 2011Q2

REPORT INFORMATION
  Report Type: 
  Country: None (occurrence: None)
  Receive Date: 20110426
  Receipt Date: 20110426
  Transmission Date: 20111010
  Serious: Yes (Other)
  Sender: FDA-Public Use
  Company Number: None

PATIENT
  Sex: Male

DRUGS (1)
  1. INVEGA SUSTENNA [Suspect]
     Indication: PARANOIA
     Dosage: 154 MG EVERY 1 MONTH IM
     Route: 030
     Dates: start: 20110314

REACTIONS (5)
  - ASTHENIA [None]
  - DROOLING [None]
  - MOVEMENT DISORDER [None]
  - MASKED FACIES [None]
  - SPEECH DISORDER [None]
